FAERS Safety Report 5234832-7 (Version None)
Quarter: 2007Q1

REPORT INFORMATION
  Report Type: 
  Country: None (occurrence: None)
  Receive Date: 20070209
  Receipt Date: 20070130
  Transmission Date: 20070707
  Serious: Yes (Disabling)
  Sender: FDA-Public Use
  Company Number: DE-PFIZER INC-2007004103

PATIENT
  Sex: Male
  Weight: 55 kg

DRUGS (2)
  1. ZELDOX (CAPSULES) [Suspect]
     Indication: PSYCHOTIC DISORDER
     Dosage: DAILY DOSE:80MG
     Route: 048
     Dates: start: 20050101, end: 20070116
  2. TAVOR [Concomitant]
     Route: 048

REACTIONS (4)
  - BLOOD CREATINE PHOSPHOKINASE INCREASED [None]
  - MICTURITION URGENCY [None]
  - MYALGIA [None]
  - RESTLESSNESS [None]
